FAERS Safety Report 25053333 (Version 4)
Quarter: 2025Q4

REPORT INFORMATION
  Report Type: Report from Study
  Country: US (occurrence: US)
  Receive Date: 20250307
  Receipt Date: 20251215
  Transmission Date: 20260118
  Serious: Yes (Other)
  Sender: ACADIA PHARMACEUTICALS
  Company Number: US-ACADIA PHARMACEUTICALS INC.-ACA-2025-PIM-001960

PATIENT

DRUGS (21)
  1. NUPLAZID [Suspect]
     Active Substance: PIMAVANSERIN TARTRATE
     Indication: Parkinson^s disease psychosis
     Dosage: 10 MILLIGRAM, BID
     Route: 048
     Dates: start: 202412
  2. NUPLAZID [Suspect]
     Active Substance: PIMAVANSERIN TARTRATE
     Dosage: 10 MILLIGRAM, QD
     Route: 048
     Dates: end: 20250629
  3. ARICEPT [Suspect]
     Active Substance: DONEPEZIL HYDROCHLORIDE
     Indication: Memory impairment
     Dosage: 5 MILLIGRAM, QD
     Route: 048
  4. ARICEPT [Suspect]
     Active Substance: DONEPEZIL HYDROCHLORIDE
     Dosage: 10 MILLIGRAM, QD
     Route: 048
  5. TYLENOL [Concomitant]
     Active Substance: ACETAMINOPHEN
     Dosage: TAKE 1 TABLET (500 MG TOTAL) BY MOUTH EVERY 4 HOURS AS NEEDED FOR PAIN
     Route: 048
  6. PROVENTIL [Concomitant]
     Active Substance: ALBUTEROL
     Dosage: USE 1 TO 2 INHALATIONS BY MOUTH EVERY 6 HOURS AS NEEDED
  7. LIPITOR [Concomitant]
     Active Substance: ATORVASTATIN CALCIUM
     Dosage: TAKE 1 TABLET BY MOUTH IN THE EVENING
     Route: 048
  8. VITAMIN D3 [Concomitant]
     Active Substance: CHOLECALCIFEROL
     Dosage: TAKE 5 TABLETS (5,000 UNITS TOTAL) BY MOUTH DAILY
     Route: 048
  9. VITAMIN B12 [Concomitant]
     Active Substance: CYANOCOBALAMIN
     Dosage: 5000 MICROGRAM, QD
     Route: 048
  10. CARDIZEM CD [Concomitant]
     Active Substance: DILTIAZEM HYDROCHLORIDE
     Dosage: 180 MILLIGRAM, QD, SUSTAINED RELEASE 24 HR
     Route: 048
  11. FLONASE [Concomitant]
     Active Substance: FLUTICASONE PROPIONATE
     Dosage: ACTUATION, NASAL SPRAY, SUSPENSION, ADMINISTER 1 SPRAY INTO EACH NOSTRIL TWICE DAILY
  12. LANTUS SOLOSTAR [Concomitant]
     Active Substance: INSULIN GLARGINE
     Dosage: 100 UNIT/ML SUBCUTANEOUS INSULIN, INJECT 12 UNITE UNDER THE EKIN EVERY NIGHT
  13. ASCORBIC ACID\CYANOCOBALAMIN\FOLIC ACID\IRON [Concomitant]
     Active Substance: ASCORBIC ACID\CYANOCOBALAMIN\FOLIC ACID\IRON
     Route: 048
  14. LIDODERM [Concomitant]
     Active Substance: LIDOCAINE
     Dosage: 700 MILLIGRAM, QD, PLACE 1 PATCH (700 MG TOTAL) ON THE SKIN ONCE A DAY
     Route: 061
  15. MELATONIN [Concomitant]
     Active Substance: MELATONIN
     Dosage: 10 MILLIGRAM, QD, CHEW 4 TABLETS (10 MG TOTAL) EVERY NIGHT
     Route: 048
  16. LOPRESSOR [Concomitant]
     Active Substance: METOPROLOL TARTRATE
     Dosage: 100 MILLIGRAM, BID
     Route: 048
  17. MYCOSTATIN [Concomitant]
     Active Substance: NYSTATIN
     Dosage: 100,000 UNIT/GRAM, APPLY TOPICALLY TWICE DAILY
     Route: 061
  18. PRILOSEC [Concomitant]
     Active Substance: OMEPRAZOLE MAGNESIUM
     Dosage: 40 MILLIGRAM, QD
     Route: 048
  19. ZOFRAN [Concomitant]
     Active Substance: ONDANSETRON HYDROCHLORIDE
     Dosage: RAPID DISSOLVE, DISSOLVE 1 TABLET ON THE TONGUE EVERY 8 HOURS AS NEEDED FOR NAUSEA/ VOMITING
     Route: 048
  20. JANUVIA [Concomitant]
     Active Substance: SITAGLIPTIN PHOSPHATE
     Dosage: 50 MILLIGRAM, QD
     Route: 048
  21. WARFARIN [Concomitant]
     Active Substance: WARFARIN
     Dosage: 2.5 MILLIGRAM, QD
     Route: 048

REACTIONS (33)
  - Hallucination, visual [Unknown]
  - Chest discomfort [Recovered/Resolved]
  - Hypersomnia [Unknown]
  - Balance disorder [Unknown]
  - Sleep apnoea syndrome [Unknown]
  - Foot deformity [Unknown]
  - Memory impairment [Unknown]
  - Depression [Recovering/Resolving]
  - Poor quality sleep [Unknown]
  - Abnormal dreams [Unknown]
  - Delusion [Unknown]
  - Device intolerance [Unknown]
  - Micturition urgency [Unknown]
  - Incontinence [Unknown]
  - Temperature regulation disorder [Unknown]
  - Dizziness [Unknown]
  - Orthostatic hypotension [Unknown]
  - Hyposmia [Unknown]
  - Bradykinesia [Unknown]
  - Cognitive disorder [Unknown]
  - Aphasia [Unknown]
  - Anxiety [Unknown]
  - Dysphonia [Unknown]
  - Reduced facial expression [Unknown]
  - Tremor [Unknown]
  - Phobia of driving [Unknown]
  - Muscular weakness [Unknown]
  - Fall [Unknown]
  - Gait disturbance [Unknown]
  - Confusional state [Recovered/Resolved]
  - Constipation [Unknown]
  - Off label use [Not Recovered/Not Resolved]
  - Underdose [Unknown]

NARRATIVE: CASE EVENT DATE: 20250301
